FAERS Safety Report 9776056 (Version 1)
Quarter: 2013Q4

REPORT INFORMATION
  Report Type: Spontaneous
  Country: US (occurrence: US)
  Receive Date: 20131220
  Receipt Date: 20131220
  Transmission Date: 20140711
  Serious: No
  Sender: FDA-Public Use
  Company Number: US-ENDO PHARMACEUTICALS INC.-HYBI20130001

PATIENT
  Sex: Female
  Weight: 61.29 kg

DRUGS (2)
  1. HYDROCODONE BITARTRATE (+) IBUPROFEN [Suspect]
     Indication: PAIN
     Dosage: UNK
     Route: 048
  2. ALPRAZOLAM ER TABLETS [Concomitant]
     Indication: ANXIETY
     Dosage: UNK
     Route: 048

REACTIONS (1)
  - Drug screen negative [Not Recovered/Not Resolved]
